FAERS Safety Report 14109787 (Version 1)
Quarter: 2017Q4

REPORT INFORMATION
  Report Type: Spontaneous
  Country: US (occurrence: US)
  Receive Date: 20171020
  Receipt Date: 20171020
  Transmission Date: 20180321
  Serious: No
  Sender: FDA-Public Use
  Company Number: US-TEVA-741009ACC

PATIENT
  Age: 45 Year
  Sex: Female

DRUGS (1)
  1. ESTRADIOL TABLETS, USP [Suspect]
     Active Substance: ESTRADIOL

REACTIONS (3)
  - Mood swings [Unknown]
  - Hot flush [Unknown]
  - Sleep disorder [Unknown]
